FAERS Safety Report 8822498 (Version 2)
Quarter: 2013Q1

REPORT INFORMATION
  Report Type: Spontaneous
  Country: US (occurrence: US)
  Receive Date: 20121003
  Receipt Date: 20130118
  Transmission Date: 20140127
  Serious: Yes (Hospitalization)
  Sender: FDA-Public Use
  Company Number: US-ASTRAZENECA-2012SE60199

PATIENT
  Age: 59 Year
  Sex: Male

DRUGS (16)
  1. CAPRELSA [Suspect]
     Indication: THYROID CANCER
     Route: 048
     Dates: start: 20120709
  2. CAPRELSA [Suspect]
     Indication: THYROID CANCER
     Route: 048
     Dates: start: 20120710
  3. CAPRELSA [Suspect]
     Indication: THYROID CANCER
     Route: 048
     Dates: start: 20120706, end: 20121217
  4. BUDESONIDE [Concomitant]
  5. ACIDOPHILUS [Concomitant]
  6. B COMPLEX [Concomitant]
  7. CALCITRIOL [Concomitant]
  8. CYTOMEL [Concomitant]
  9. DUONEB [Concomitant]
  10. GUAIFENESIN [Concomitant]
  11. LOMITIL [Concomitant]
  12. METFORMIN [Concomitant]
  13. OPIUM [Concomitant]
  14. SYNTHROID [Concomitant]
  15. VITAMINS [Concomitant]
  16. DOXYCYCLINE [Concomitant]

REACTIONS (3)
  - Cushing^s syndrome [Recovering/Resolving]
  - Arthralgia [Unknown]
  - Rash vesicular [Unknown]
